FAERS Safety Report 4330808-2 (Version None)
Quarter: 2004Q1

REPORT INFORMATION
  Report Type: 
  Country: None (occurrence: None)
  Receive Date: 20040331
  Receipt Date: 20040224
  Transmission Date: 20041129
  Serious: Yes (Life-Threatening)
  Sender: FDA-Public Use
  Company Number: 03H-163-0235960-00

PATIENT
  Age: 40 Year
  Sex: Male
  Weight: 109 kg

DRUGS (17)
  1. ULTANE [Suspect]
     Indication: ANAESTHESIA
     Dosage: 8 %; SEE IMAGE
     Dates: start: 20031006, end: 20031006
  2. ULTANE [Suspect]
     Indication: ANAESTHESIA
     Dosage: 8 %; SEE IMAGE
     Dates: start: 20031006, end: 20031006
  3. ULTANE [Suspect]
     Indication: ANAESTHESIA
     Dosage: 8 %; SEE IMAGE
     Dates: start: 20031006, end: 20031006
  4. ULTANE [Suspect]
     Indication: ANAESTHESIA
     Dosage: 8 %; SEE IMAGE
  5. ISOFLURANE [Suspect]
     Indication: ANAESTHESIA
     Dosage: 2 %, INHALATION
     Route: 055
     Dates: start: 20031006, end: 20031006
  6. FENTANYL [Concomitant]
  7. SUXAMETHONIUM CHLORIDE [Concomitant]
  8. NITROUS OXIDE [Concomitant]
  9. PROPOFOL [Concomitant]
  10. ANTIBIOTICS [Concomitant]
  11. MIDAZOLAM HCL [Concomitant]
  12. METOPROLOL [Concomitant]
  13. NAPROXEN [Concomitant]
  14. SIMVASTATIN [Concomitant]
  15. CHLORTALIDONE [Concomitant]
  16. LIDOCAINE 1% [Concomitant]
  17. OXYGEN [Concomitant]

REACTIONS (13)
  - ACUTE RESPIRATORY DISTRESS SYNDROME [None]
  - BRONCHIAL INJURY [None]
  - BRONCHITIS [None]
  - CARBOXYHAEMOGLOBINAEMIA [None]
  - CHEMICAL INJURY [None]
  - ERYTHEMA [None]
  - HAEMORRHAGE [None]
  - IATROGENIC INJURY [None]
  - LUNG INFECTION [None]
  - LUNG INFILTRATION [None]
  - NECROSIS [None]
  - NOSOCOMIAL INFECTION [None]
  - TRACHEAL DISORDER [None]
